FAERS Safety Report 9000928 (Version 1)
Quarter: 2013Q1

REPORT INFORMATION
  Report Type: Spontaneous
  Country: US (occurrence: None)
  Receive Date: 20130103
  Receipt Date: 20130103
  Transmission Date: 20140127
  Serious: Yes (Death)
  Sender: FDA-Public Use
  Company Number: None

PATIENT
  Age: 62 Year
  Sex: Male
  Weight: 77.11 kg

DRUGS (3)
  1. INCIVEK [Suspect]
     Indication: HEPATITIS C
     Dates: start: 20120104, end: 20120301
  2. RIBAVIRIN [Concomitant]
  3. PEGINTERFERON [Concomitant]

REACTIONS (4)
  - Rash [None]
  - Cellulitis [None]
  - Hepatic failure [None]
  - Renal failure [None]
